FAERS Safety Report 5166079-7 (Version None)
Quarter: 2006Q4

REPORT INFORMATION
  Report Type: 
  Country: None (occurrence: None)
  Receive Date: 20061128
  Receipt Date: 20061115
  Transmission Date: 20070319
  Serious: Yes (Other)
  Sender: FDA-Public Use
  Company Number: 2006127423

PATIENT
  Age: 57 Year
  Sex: Male
  Weight: 92.9874 kg

DRUGS (2)
  1. CELEBREX [Suspect]
     Indication: TENDONITIS
     Dosage: 200 MG (200 MG, 1 IN 1 D);
     Dates: start: 20060808, end: 20060817
  2. TOPROL-XL [Concomitant]

REACTIONS (3)
  - ATRIAL FLUTTER [None]
  - DISEASE RECURRENCE [None]
  - RENAL VASCULITIS [None]
